FAERS Safety Report 25048084 (Version 1)
Quarter: 2025Q1

REPORT INFORMATION
  Report Type: Spontaneous
  Country: BR (occurrence: BR)
  Receive Date: 20250306
  Receipt Date: 20250306
  Transmission Date: 20250409
  Serious: Yes (Other)
  Sender: BIOGEN
  Company Number: BR-BIOGEN-2024BI01294226

PATIENT
  Sex: Female
  Weight: 48 kg

DRUGS (5)
  1. AVONEX [Suspect]
     Active Substance: INTERFERON BETA-1A
     Indication: Multiple sclerosis
     Route: 050
  2. AVONEX [Suspect]
     Active Substance: INTERFERON BETA-1A
  3. AVONEX [Suspect]
     Active Substance: INTERFERON BETA-1A
  4. AVONEX [Suspect]
     Active Substance: INTERFERON BETA-1A
  5. GILENYA [Suspect]
     Active Substance: FINGOLIMOD HYDROCHLORIDE
     Indication: Multiple sclerosis
     Route: 050

REACTIONS (9)
  - Renal failure [Unknown]
  - Multiple sclerosis relapse [Unknown]
  - Off label use [Recovered/Resolved]
  - Urinary tract infection [Unknown]
  - Multiple sclerosis [Unknown]
  - Dyspnoea [Unknown]
  - Insomnia [Unknown]
  - Palpitations [Unknown]
  - Hypersensitivity [Unknown]
